FAERS Safety Report 15361766 (Version 1)
Quarter: 2018Q3

REPORT INFORMATION
  Report Type: Report from Study
  Country: None (occurrence: FI)
  Receive Date: 20180907
  Receipt Date: 20180907
  Transmission Date: 20181010
  Serious: Yes (Hospitalization)
  Sender: FDA-Public Use
  Company Number: FI-ABBVIE-18S-055-2473533-00

PATIENT
  Age: 63 Year
  Sex: Female

DRUGS (1)
  1. DUODOPA [Suspect]
     Active Substance: CARBIDOPA\LEVODOPA
     Indication: PARKINSON^S DISEASE
     Dosage: MD 3.4 ML; CD 3.1 ML; ED 1.7 ML; 16 H TREATMENT
     Route: 050
     Dates: start: 2013

REACTIONS (6)
  - Device colour issue [Unknown]
  - Device issue [Not Recovered/Not Resolved]
  - Medical device site burn [Unknown]
  - Device occlusion [Recovered/Resolved]
  - Device occlusion [Not Recovered/Not Resolved]
  - Fall [Unknown]

NARRATIVE: CASE EVENT DATE: 20180831
